FAERS Safety Report 6224334-3 (Version None)
Quarter: 2009Q2

REPORT INFORMATION
  Report Type: 
  Country: None (occurrence: None)
  Receive Date: 20090612
  Receipt Date: 20090316
  Transmission Date: 20091009
  Serious: No
  Sender: FDA-Public Use
  Company Number: US-ABBOTT-09P-163-0562915-00

PATIENT
  Sex: Female
  Weight: 113.5 kg

DRUGS (5)
  1. HUMIRA [Suspect]
     Indication: PSORIATIC ARTHROPATHY
     Route: 058
     Dates: start: 20090222
  2. CARDIZEM ER [Concomitant]
     Indication: HYPERTENSION
     Dosage: UNKNOWN
  3. LOTENSIN [Concomitant]
     Indication: HYPERTENSION
     Dosage: UNKNOWN
  4. METHOTREXATE [Concomitant]
     Indication: PSORIATIC ARTHROPATHY
     Dates: start: 20090201
  5. METHOTREXATE [Concomitant]
     Dosage: UNKNOWN

REACTIONS (2)
  - DRUG DELIVERY SYSTEM MALFUNCTION [None]
  - INCORRECT DOSE ADMINISTERED [None]
